FAERS Safety Report 21243733 (Version 1)
Quarter: 2022Q3

REPORT INFORMATION
  Report Type: Spontaneous
  Country: DE (occurrence: DE)
  Receive Date: 20220823
  Receipt Date: 20220823
  Transmission Date: 20221026
  Serious: Yes (Disabling, Other)
  Sender: FDA-Public Use
  Company Number: DE-SANOFI-01145791

PATIENT
  Age: 53 Year
  Sex: Female

DRUGS (10)
  1. METHOTREXATE [Suspect]
     Active Substance: METHOTREXATE
     Indication: Seronegative arthritis
     Dosage: UNK
     Route: 065
  2. METHOTREXATE [Suspect]
     Active Substance: METHOTREXATE
     Indication: Enthesopathy
  3. METHOTREXATE [Suspect]
     Active Substance: METHOTREXATE
     Indication: Arthralgia
  4. METHOTREXATE [Suspect]
     Active Substance: METHOTREXATE
     Indication: Joint swelling
  5. DUPIXENT [Suspect]
     Active Substance: DUPILUMAB
     Indication: Dyshidrotic eczema
     Dosage: UNK
     Route: 065
     Dates: start: 20210819
  6. DUPIXENT [Suspect]
     Active Substance: DUPILUMAB
     Indication: Eczema
     Dosage: UNK
     Route: 065
  7. RAMIPRIL [Concomitant]
     Active Substance: RAMIPRIL
     Indication: Hypertension
     Dosage: UNK
     Route: 065
  8. TORSEMIDE [Concomitant]
     Active Substance: TORSEMIDE
     Indication: Hypertension
     Dosage: UNK
     Route: 065
  9. VENLAFAXINE HYDROCHLORIDE [Concomitant]
     Active Substance: VENLAFAXINE HYDROCHLORIDE
     Dosage: UNK
     Route: 065
  10. BISOPROLOL [Concomitant]
     Active Substance: BISOPROLOL
     Indication: Hypertension
     Dosage: UNK
     Route: 065

REACTIONS (9)
  - Seronegative arthritis [Unknown]
  - Enthesopathy [Unknown]
  - Joint swelling [Unknown]
  - Arthralgia [Recovering/Resolving]
  - Skin disorder [Recovering/Resolving]
  - Condition aggravated [Recovering/Resolving]
  - Intentional product misuse [Unknown]
  - Herpes simplex [Unknown]
  - Off label use [Unknown]

NARRATIVE: CASE EVENT DATE: 20210819
